FAERS Safety Report 7214105 (Version 23)
Quarter: 2019Q1

REPORT INFORMATION
  Report Type: Report from Study
  Country: CA (occurrence: CA)
  Receive Date: 20091214
  Receipt Date: 20190212
  Transmission Date: 20190418
  Serious: Yes (Other)
  Sender: FDA-Public Use
  Company Number: PHHY2009CA53872

PATIENT
  Sex: Male

DRUGS (2)
  1. SANDOSTATIN LAR DEPOT [Suspect]
     Active Substance: OCTREOTIDE ACETATE
     Indication: SMALL INTESTINE CARCINOMA
     Dosage: 30 MG, Q4W
     Route: 030
     Dates: start: 20080815
  2. SANDOSTATIN LAR DEPOT [Suspect]
     Active Substance: OCTREOTIDE ACETATE
     Dosage: 30 MG, Q4W
     Route: 030

REACTIONS (4)
  - Nephrolithiasis [Unknown]
  - Blood pressure systolic increased [Unknown]
  - Cholelithiasis [Unknown]
  - Otitis media [Unknown]

NARRATIVE: CASE EVENT DATE: 2018
